FAERS Safety Report 12380279 (Version 1)
Quarter: 2016Q2

REPORT INFORMATION
  Report Type: Spontaneous
  Country: US (occurrence: None)
  Receive Date: 20160516
  Receipt Date: 20160516
  Transmission Date: 20160815
  Serious: Yes (Hospitalization, Other)
  Sender: FDA-Public Use
  Company Number: None

PATIENT
  Age: 73 Year
  Sex: Male

DRUGS (2)
  1. ROSUVASTATIN. [Suspect]
     Active Substance: ROSUVASTATIN
     Dosage: MG  EVERY DAY PO
     Route: 048
     Dates: start: 20150706
  2. ATORVASTATIN [Suspect]
     Active Substance: ATORVASTATIN
     Dosage: MG PO
     Route: 048
     Dates: start: 20150811

REACTIONS (2)
  - Rhabdomyolysis [None]
  - Dialysis [None]

NARRATIVE: CASE EVENT DATE: 20150822
